FAERS Safety Report 7715096-9 (Version None)
Quarter: 2011Q3

REPORT INFORMATION
  Report Type: 
  Country: None (occurrence: None)
  Receive Date: 20110829
  Receipt Date: 20110818
  Transmission Date: 20111222
  Serious: Yes (Other)
  Sender: FDA-Public Use
  Company Number: PHBS2003BR05086

PATIENT
  Age: 38 Year
  Sex: Male
  Weight: 78 kg

DRUGS (10)
  1. CLOZAPINE [Suspect]
     Dosage: 450 MG, PER DAY
     Route: 048
     Dates: start: 20000101
  2. DIAZEPAM [Concomitant]
     Indication: NERVOUSNESS
  3. VITAMIN B COMPLEX CAP [Concomitant]
     Dosage: 3 DF, PER DAY
     Route: 048
     Dates: start: 20031001, end: 20031001
  4. DIAZEPAM [Concomitant]
     Indication: ANXIETY
     Dosage: 10 MG HALF TABLET DAILY
     Route: 048
  5. CALCIUM CARBONATE [Concomitant]
     Route: 048
  6. OMEPRAZOLE [Concomitant]
     Indication: GASTRITIS
     Route: 048
  7. ZYPREXA [Concomitant]
  8. AKINETON [Concomitant]
     Dosage: 1 DF,
     Route: 048
  9. CLOZAPINE [Suspect]
     Indication: SCHIZOPHRENIA
     Dosage: 100 MG,
     Route: 048
  10. CLOZAPINE [Concomitant]

REACTIONS (9)
  - PLATELET COUNT ABNORMAL [None]
  - LIMB DISCOMFORT [None]
  - PAIN IN EXTREMITY [None]
  - GAIT DISTURBANCE [None]
  - OESOPHAGITIS [None]
  - MUSCLE SPASMS [None]
  - DIARRHOEA [None]
  - GASTRITIS [None]
  - TONGUE DISORDER [None]
